FAERS Safety Report 9969628 (Version 2)
Quarter: 2014Q2

REPORT INFORMATION
  Report Type: Spontaneous
  Country: US (occurrence: None)
  Receive Date: 20140130
  Receipt Date: 20140501
  Transmission Date: 20141212
  Serious: No
  Sender: FDA-Public Use
  Company Number: PHEH2013US025437

PATIENT
  Age: 77 Year
  Sex: Male

DRUGS (7)
  1. ARCAPTA (INDACATEROL) UNKNOWN [Suspect]
  2. LASIX (FUROSEMIDE) [Concomitant]
  3. VICODIN (HYDROCODONE BITARTRATE, PARACETAMOL) [Concomitant]
  4. FLOMAX (TAMSULOSIN HYDROCHLORIDE) [Concomitant]
  5. SPIRIVA [Concomitant]
  6. LISINOPRIL [Concomitant]
  7. ASPIRIN (ACETYLSALICYLIC ACID) [Concomitant]

REACTIONS (4)
  - Feeling hot [None]
  - Dyspnoea [None]
  - Drug ineffective [None]
  - General physical condition abnormal [None]
